FAERS Safety Report 9311643 (Version 2)
Quarter: 2013Q3

REPORT INFORMATION
  Report Type: Spontaneous
  Country: US (occurrence: US)
  Receive Date: 20130528
  Receipt Date: 20130716
  Transmission Date: 20140515
  Serious: No
  Sender: FDA-Public Use
  Company Number: US-PFIZER INC-2013160357

PATIENT
  Age: 87 Year
  Sex: Male
  Weight: 73.92 kg

DRUGS (3)
  1. ADVIL [Suspect]
     Indication: ARTHRALGIA
     Dosage: 200 MG, ONCE A DAY
     Route: 048
  2. ADVIL [Suspect]
     Dosage: 200 MG, ONCE A DAY
     Route: 048
     Dates: start: 20130522
  3. TRELSTAR [Concomitant]
     Indication: PROSTATE CANCER
     Dosage: UNK, ONCE A MONTH

REACTIONS (2)
  - Drug effect decreased [Unknown]
  - Hyperhidrosis [Recovered/Resolved]
